FAERS Safety Report 22249945 (Version 1)
Quarter: 2023Q2

REPORT INFORMATION
  Report Type: Spontaneous
  Country: US (occurrence: US)
  Receive Date: 20230425
  Receipt Date: 20230425
  Transmission Date: 20230722
  Serious: Yes (Other)
  Sender: FDA-Public Use
  Company Number: US-MYLANLABS-2023M1042689

PATIENT
  Sex: Male
  Weight: 97.52 kg

DRUGS (2)
  1. VIAGRA [Suspect]
     Active Substance: SILDENAFIL CITRATE
     Indication: Erectile dysfunction
     Dosage: 25 MILLIGRAM (LOWEST DOSE)
     Route: 048
     Dates: start: 20230227, end: 202303
  2. VIAGRA [Suspect]
     Active Substance: SILDENAFIL CITRATE
     Dosage: 12.5 MILLIGRAM, BIWEEKLY (TWICE A WEEK ORALLY)
     Route: 048
     Dates: start: 20230227, end: 202303

REACTIONS (3)
  - Migraine [Not Recovered/Not Resolved]
  - Hypoaesthesia [Unknown]
  - Wrong technique in product usage process [Unknown]
